FAERS Safety Report 4603325-X (Version None)
Quarter: 2005Q2

REPORT INFORMATION
  Report Type: 
  Country: None (occurrence: None)
  Receive Date: 20050223
  Receipt Date: 20041108
  Transmission Date: 20051028
  Serious: No
  Sender: FDA-Public Use
  Company Number: 210268

PATIENT
  Age: 44 Year
  Sex: Female

DRUGS (1)
  1. RAPTIVA [Suspect]
     Indication: PSORIASIS
     Dosage: 125 MG, SINGLE, SUBCUTANEOUS
     Route: 058
     Dates: start: 20041022, end: 20041022

REACTIONS (2)
  - INFLUENZA LIKE ILLNESS [None]
  - STOMACH DISCOMFORT [None]
